FAERS Safety Report 23803627 (Version 1)
Quarter: 2024Q2

REPORT INFORMATION
  Report Type: Spontaneous
  Country: US (occurrence: US)
  Receive Date: 20240501
  Receipt Date: 20240501
  Transmission Date: 20240716
  Serious: No
  Sender: FDA-Public Use
  Company Number: US-Calliditas-2024CAL00657

PATIENT
  Age: 72 Year
  Sex: Female

DRUGS (1)
  1. TARPEYO [Suspect]
     Active Substance: BUDESONIDE
     Indication: IgA nephropathy
     Dosage: 16MG (4MG CAPSULES) ONCE DAILY
     Route: 048
     Dates: start: 20231002

REACTIONS (5)
  - Swelling face [Unknown]
  - Joint swelling [Unknown]
  - Peripheral swelling [Unknown]
  - Skin irritation [Unknown]
  - Blood glucose increased [Unknown]
